FAERS Safety Report 14747924 (Version 2)
Quarter: 2018Q2

REPORT INFORMATION
  Report Type: Other
  Country: US (occurrence: US)
  Receive Date: 20180411
  Receipt Date: 20180503
  Transmission Date: 20180711
  Serious: No
  Sender: FDA-Public Use
  Company Number: US-SUNOVION-2018SUN001250

PATIENT
  Sex: Male

DRUGS (2)
  1. LONHALA MAGNAIR [Suspect]
     Active Substance: GLYCOPYRROLATE
     Indication: CHRONIC OBSTRUCTIVE PULMONARY DISEASE
     Dosage: 25MCG/1ML, BID
     Route: 055
     Dates: start: 201803
  2. LONHALA MAGNAIR [Suspect]
     Active Substance: GLYCOPYRROLATE
     Indication: COUGH

REACTIONS (1)
  - Off label use [Unknown]
